FAERS Safety Report 5917016-6 (Version None)
Quarter: 2008Q4

REPORT INFORMATION
  Report Type: 
  Country: None (occurrence: None)
  Receive Date: 20081010
  Receipt Date: 20081010
  Transmission Date: 20090506
  Serious: Yes (Other)
  Sender: FDA-Public Use
  Company Number: None

PATIENT
  Sex: Male
  Weight: 88.4514 kg

DRUGS (2)
  1. GAMUNEX [Suspect]
     Indication: NEUROPATHY PERIPHERAL
     Dosage: 35 GM QD X 5 DAYS IV DRIP
     Route: 041
     Dates: start: 20080825, end: 20080829
  2. GAMUNEX [Suspect]
     Indication: NEUROPATHY PERIPHERAL
     Dosage: 35 GM QD X 5 DAYS IV DRIP
     Route: 041
     Dates: start: 20080825, end: 20080829

REACTIONS (2)
  - RASH [None]
  - TYPE IV HYPERSENSITIVITY REACTION [None]
